FAERS Safety Report 15289908 (Version 2)
Quarter: 2018Q3

REPORT INFORMATION
  Report Type: Report from Study
  Country: US (occurrence: US)
  Receive Date: 20180817
  Receipt Date: 20180904
  Transmission Date: 20181010
  Serious: Yes (Death)
  Sender: FDA-Public Use
  Company Number: US-PFIZER INC-2018331597

PATIENT
  Age: 66 Year
  Sex: Male

DRUGS (1)
  1. METAXALONE. [Suspect]
     Active Substance: METAXALONE
     Dosage: UNK

REACTIONS (9)
  - Hypotension [Fatal]
  - Delirium [Fatal]
  - Toxicity to various agents [Fatal]
  - Acute kidney injury [Fatal]
  - Tremor [Fatal]
  - Brain death [Fatal]
  - Coma [Fatal]
  - Depressed level of consciousness [Fatal]
  - Hyperreflexia [Fatal]
